FAERS Safety Report 15669058 (Version 2)
Quarter: 2018Q4

REPORT INFORMATION
  Report Type: Spontaneous
  Country: US (occurrence: US)
  Receive Date: 20181129
  Receipt Date: 20181206
  Transmission Date: 20190205
  Serious: Yes (Death, Hospitalization)
  Sender: FDA-Public Use
  Company Number: US-STRIDES ARCOLAB LIMITED-2018SP010032

PATIENT
  Age: 6 Decade
  Sex: Male

DRUGS (24)
  1. AMPHOTERICIN B, LIPOSOME [Concomitant]
     Active Substance: AMPHOTERICIN B
     Indication: SEIZURE
     Dosage: ADDITIONAL 12 WEEK COURSE
     Route: 065
  2. VORICONAZOLE. [Concomitant]
     Active Substance: VORICONAZOLE
     Indication: MENINGITIS CRYPTOCOCCAL
     Dosage: UNK
     Route: 065
  3. ABACAVIR. [Suspect]
     Active Substance: ABACAVIR
     Indication: HIV INFECTION
     Dosage: UNK
     Route: 065
  4. DOLUTEGRAVIR [Suspect]
     Active Substance: DOLUTEGRAVIR
     Indication: HIV INFECTION
     Dosage: UNK
     Route: 065
  5. DOLUTEGRAVIR [Suspect]
     Active Substance: DOLUTEGRAVIR
     Indication: ACQUIRED IMMUNODEFICIENCY SYNDROME
  6. AMPHOTERICIN B, LIPOSOME [Concomitant]
     Active Substance: AMPHOTERICIN B
     Indication: ENCEPHALITIS
     Dosage: THREE ADDITIONAL INDUCTION COURSES
     Route: 065
  7. DEXAMETHASONE. [Concomitant]
     Active Substance: DEXAMETHASONE
     Indication: MENINGITIS CRYPTOCOCCAL
     Dosage: UNK
     Route: 065
  8. LAMIVUDINE. [Suspect]
     Active Substance: LAMIVUDINE
     Indication: HIV INFECTION
     Dosage: UNK
     Route: 065
  9. FLUCYTOSINE. [Concomitant]
     Active Substance: FLUCYTOSINE
     Indication: ENCEPHALITIS
     Dosage: 400 MG, DAILY
     Route: 048
  10. FLUCYTOSINE. [Concomitant]
     Active Substance: FLUCYTOSINE
     Dosage: 200 MG, DAILY
     Route: 048
  11. VORICONAZOLE. [Concomitant]
     Active Substance: VORICONAZOLE
     Indication: ENCEPHALITIS
     Dosage: 500 MG, PER DAY
     Route: 065
  12. FLUCONAZOLE. [Concomitant]
     Active Substance: FLUCONAZOLE
     Indication: MENINGITIS CRYPTOCOCCAL
     Dosage: 400 MG, DAILY
     Route: 048
  13. AMPHOTERICIN B, LIPOSOME [Concomitant]
     Active Substance: AMPHOTERICIN B
     Indication: MENINGITIS CRYPTOCOCCAL
     Dosage: 4 MG/KG, QD
     Route: 042
  14. AMPHOTERICIN B, LIPOSOME [Concomitant]
     Active Substance: AMPHOTERICIN B
     Indication: MENTAL STATUS CHANGES
     Dosage: 6 MG/KG/DAY, UNKNOWN
     Route: 065
  15. AMPHOTERICIN B, LIPOSOME [Concomitant]
     Active Substance: AMPHOTERICIN B
     Dosage: UNK
     Route: 065
  16. FLUCYTOSINE. [Concomitant]
     Active Substance: FLUCYTOSINE
     Indication: MENINGITIS CRYPTOCOCCAL
     Dosage: 100 MG/KG/DAY
     Route: 048
  17. LAMIVUDINE. [Suspect]
     Active Substance: LAMIVUDINE
     Indication: ACQUIRED IMMUNODEFICIENCY SYNDROME
  18. DEXAMETHASONE. [Concomitant]
     Active Substance: DEXAMETHASONE
     Indication: ENCEPHALITIS
     Dosage: 4 MG, EVERY 8 HOURS
     Route: 065
  19. FLUCONAZOLE. [Concomitant]
     Active Substance: FLUCONAZOLE
     Indication: ENCEPHALITIS
     Dosage: 200 MG, DAILY
     Route: 048
  20. ABACAVIR. [Suspect]
     Active Substance: ABACAVIR
     Indication: ACQUIRED IMMUNODEFICIENCY SYNDROME
  21. FLUCONAZOLE. [Concomitant]
     Active Substance: FLUCONAZOLE
     Dosage: 800 MG, UNKNOWN
     Route: 048
  22. FLUCYTOSINE. [Concomitant]
     Active Substance: FLUCYTOSINE
     Dosage: 100 MG/KG/DAY
     Route: 065
  23. FLUCYTOSINE. [Concomitant]
     Active Substance: FLUCYTOSINE
     Dosage: 100 MG/KG/DAY, UNKNOWN
     Route: 048
  24. AMPHOTERICIN B DEOXYCHOLATE [Concomitant]
     Active Substance: AMPHOTERICIN B
     Indication: SEIZURE
     Dosage: 1 MG/KG/DAY, ONCE A WEEK
     Route: 065

REACTIONS (4)
  - Encephalitis [Fatal]
  - Immune reconstitution inflammatory syndrome [Unknown]
  - Condition aggravated [Fatal]
  - Meningitis cryptococcal [Fatal]
